FAERS Safety Report 21969981 (Version 1)
Quarter: 2023Q1

REPORT INFORMATION
  Report Type: Spontaneous
  Country: US (occurrence: US)
  Receive Date: 20230208
  Receipt Date: 20230208
  Transmission Date: 20230417
  Serious: Yes (Other)
  Sender: FDA-Public Use
  Company Number: US-STRIDES ARCOLAB LIMITED-2022SP011505

PATIENT

DRUGS (4)
  1. AMOXICILLIN [Suspect]
     Active Substance: AMOXICILLIN
     Indication: Arthritis infective
     Dosage: UNK CHRONIC ANTIBACTERIAL SUPPRESSIVE REGIMEN-2
     Route: 048
  2. AMOXICILLIN [Suspect]
     Active Substance: AMOXICILLIN
     Indication: Alpha haemolytic streptococcal infection
  3. LEVAQUIN [Concomitant]
     Active Substance: LEVOFLOXACIN
     Indication: Arthritis infective
     Dosage: UNK CHRONIC ANTIBACTERIAL (ANTIBIOTIC) SUPPRESSIVE REGIMEN-1
     Route: 048
  4. LEVAQUIN [Concomitant]
     Active Substance: LEVOFLOXACIN
     Indication: Alpha haemolytic streptococcal infection

REACTIONS (1)
  - Treatment failure [Unknown]
